FAERS Safety Report 14337075 (Version 1)
Quarter: 2017Q4

REPORT INFORMATION
  Report Type: Spontaneous
  Country: GB (occurrence: GB)
  Receive Date: 20171229
  Receipt Date: 20171229
  Transmission Date: 20180321
  Serious: Yes (Other)
  Sender: FDA-Public Use
  Company Number: GB-PFIZER INC-2017543884

PATIENT
  Age: 47 Year
  Sex: Male

DRUGS (1)
  1. CHAMPIX [Suspect]
     Active Substance: VARENICLINE TARTRATE
     Dosage: 0.5 MG, UNK
     Dates: start: 20171217

REACTIONS (7)
  - Malaise [Unknown]
  - Haematemesis [Unknown]
  - Drug hypersensitivity [Unknown]
  - Dizziness [Unknown]
  - Nausea [Unknown]
  - Loss of consciousness [Unknown]
  - Feeling hot [Unknown]

NARRATIVE: CASE EVENT DATE: 20171217
